FAERS Safety Report 10696175 (Version 2)
Quarter: 2015Q1

REPORT INFORMATION
  Report Type: Report from Study
  Country: US (occurrence: US)
  Receive Date: 20150107
  Receipt Date: 20150107
  Transmission Date: 20150721
  Serious: Yes (Hospitalization)
  Sender: FDA-Public Use
  Company Number: US-BRISTOL-MYERS SQUIBB COMPANY-21604632

PATIENT
  Age: 80 Year
  Sex: Female
  Weight: 73.3 kg

DRUGS (26)
  1. NIVOLUMAB [Suspect]
     Active Substance: NIVOLUMAB
     Indication: MALIGNANT MELANOMA
     Dosage: LAST DOSE:29OCT2014
     Route: 042
     Dates: start: 20141003, end: 20141029
  2. OMEGA 3 FATTY ACID [Concomitant]
     Active Substance: OMEGA-3 FATTY ACIDS
  3. AZILSARTAN MEDOXOMIL [Concomitant]
     Active Substance: AZILSARTAN KAMEDOXOMIL
  4. CIPROFLOXACIN. [Concomitant]
     Active Substance: CIPROFLOXACIN
     Dosage: 400 MG, UNK
     Route: 042
  5. HYDROXYZINE [Concomitant]
     Active Substance: HYDROXYZINE\HYDROXYZINE HYDROCHLORIDE
  6. CALCIUM [Concomitant]
     Active Substance: CALCIUM
  7. COLESEVELAM [Concomitant]
     Active Substance: COLESEVELAM
  8. PIOGLITAZONE HCL [Concomitant]
     Active Substance: PIOGLITAZONE
  9. VICODIN [Concomitant]
     Active Substance: ACETAMINOPHEN\HYDROCODONE BITARTRATE
  10. LOMOTIL [Concomitant]
     Active Substance: ATROPINE SULFATE\DIPHENOXYLATE HYDROCHLORIDE
  11. DIPHENOXYLATE + ATROPINE [Concomitant]
     Dosage: 1DF=0. 025 MG-2.5 MG TAB
  12. ATENOLOL. [Concomitant]
     Active Substance: ATENOLOL
  13. ESCITALOPRAM [Concomitant]
     Active Substance: ESCITALOPRAM OXALATE
  14. CHLORTHALIDONE. [Concomitant]
     Active Substance: CHLORTHALIDONE
  15. MULTIVITAMIN WITH MINERALS [Concomitant]
     Active Substance: MINERALS\VITAMINS
  16. VITAMIN D [Concomitant]
     Active Substance: CHOLECALCIFEROL
  17. TRIAMCINOLON E [Concomitant]
  18. PREDNISONE. [Concomitant]
     Active Substance: PREDNISONE
  19. IPILIMUMAB [Suspect]
     Active Substance: IPILIMUMAB
     Indication: MALIGNANT MELANOMA
     Dosage: LAST DOSE:11SEP2014
     Route: 042
     Dates: start: 20140710, end: 20140911
  20. FENOFIBRATE. [Concomitant]
     Active Substance: FENOFIBRATE
  21. LEVOTHYROXINE [Concomitant]
     Active Substance: LEVOTHYROXINE
  22. OMEPRAZOL E [Concomitant]
     Active Substance: OMEPRAZOLE
  23. TRAVOPROST [Concomitant]
     Active Substance: TRAVOPROST
  24. BIOTIN [Concomitant]
     Active Substance: BIOTIN
  25. ZOLPIDEM [Concomitant]
     Active Substance: ZOLPIDEM\ZOLPIDEM TARTRATE
  26. METRONIDAZOLE. [Concomitant]
     Active Substance: METRONIDAZOLE
     Dosage: 500 MG, INTERMITTENT
     Route: 042

REACTIONS (2)
  - Hyponatraemia [None]
  - Colitis [Recovered/Resolved]

NARRATIVE: CASE EVENT DATE: 20141112
